FAERS Safety Report 5237982-4 (Version None)
Quarter: 2007Q1

REPORT INFORMATION
  Report Type: 
  Country: None (occurrence: None)
  Receive Date: 20070214
  Receipt Date: 20070206
  Transmission Date: 20070707
  Serious: Yes (Hospitalization)
  Sender: FDA-Public Use
  Company Number: US-PFIZER INC-2005099285

PATIENT
  Sex: Male
  Weight: 81.2 kg

DRUGS (6)
  1. SUTENT [Suspect]
     Indication: RENAL CANCER METASTATIC
     Route: 048
  2. PERCOCET [Concomitant]
     Route: 048
  3. SODIUM POLYSTYRENE SULFONATE [Concomitant]
     Route: 048
  4. TUMS [Concomitant]
     Route: 048
  5. COMPAZINE [Concomitant]
     Route: 048
  6. VITAMIN CAP [Concomitant]
     Route: 048

REACTIONS (1)
  - ASCITES [None]
